FAERS Safety Report 6803732-0 (Version None)
Quarter: 2010Q2

REPORT INFORMATION
  Report Type: 
  Country: None (occurrence: None)
  Receive Date: 20100628
  Receipt Date: 20100614
  Transmission Date: 20101027
  Serious: Yes (Other)
  Sender: FDA-Public Use
  Company Number: US-ELI_LILLY_AND_COMPANY-US201006004062

PATIENT
  Sex: Male

DRUGS (1)
  1. ZYPREXA [Suspect]
     Dates: start: 20020327, end: 20030529

REACTIONS (4)
  - GLAUCOMA [None]
  - HYPERTENSION [None]
  - MACULAR DEGENERATION [None]
  - PROSTATE CANCER [None]
